FAERS Safety Report 11641470 (Version 1)
Quarter: 2015Q4

REPORT INFORMATION
  Report Type: Spontaneous
  Country: BE (occurrence: BE)
  Receive Date: 20151019
  Receipt Date: 20151019
  Transmission Date: 20160304
  Serious: Yes (Other)
  Sender: FDA-Public Use
  Company Number: BE-LEO PHARMA-237040

PATIENT
  Sex: Male
  Weight: 69 kg

DRUGS (1)
  1. PICATO [Suspect]
     Active Substance: INGENOL MEBUTATE
     Indication: ACTINIC KERATOSIS
     Dates: start: 20150912, end: 20150914

REACTIONS (3)
  - Eye oedema [Recovered/Resolved]
  - Throat irritation [Recovered/Resolved]
  - Face oedema [Recovered/Resolved]
